FAERS Safety Report 7563219-7 (Version None)
Quarter: 2011Q2

REPORT INFORMATION
  Report Type: 
  Country: None (occurrence: None)
  Receive Date: 20110615
  Receipt Date: 20110607
  Transmission Date: 20111010
  Serious: Yes (Hospitalization)
  Sender: FDA-Public Use
  Company Number: 2010SP041957

PATIENT
  Age: 23 Year
  Sex: Female
  Weight: 86.1834 kg

DRUGS (1)
  1. NUVARING [Suspect]
     Indication: CONTRACEPTION
     Dates: start: 20070101, end: 20080701

REACTIONS (12)
  - ATELECTASIS [None]
  - DEEP VEIN THROMBOSIS [None]
  - BLOOD DISORDER [None]
  - PNEUMONIA [None]
  - ROAD TRAFFIC ACCIDENT [None]
  - THROMBOSIS [None]
  - ANGINA PECTORIS [None]
  - ANXIETY [None]
  - PULMONARY INFARCTION [None]
  - PULMONARY EMBOLISM [None]
  - ABDOMINAL PAIN [None]
  - PALPITATIONS [None]
